FAERS Safety Report 24831198 (Version 3)
Quarter: 2025Q1

REPORT INFORMATION
  Report Type: Report from Study
  Country: US (occurrence: US)
  Receive Date: 20250110
  Receipt Date: 20250221
  Transmission Date: 20250409
  Serious: Yes (Other)
  Sender: MERCK SHARP & DOHME LLC
  Company Number: US-009507513-2412USA009354

PATIENT
  Age: 44 Year
  Sex: Female
  Weight: 57.596 kg

DRUGS (8)
  1. WINREVAIR [Suspect]
     Active Substance: SOTATERCEPT-CSRK
     Indication: Pulmonary arterial hypertension
     Dosage: DOSE DESCRIPTION : 0.4 MILLILITER, Q3W, STRENGTH: 45 MG?DAILY DOSE : 0.019 MILLILITER?REGIMEN DOS...
     Route: 058
     Dates: start: 20241213
  2. WINREVAIR [Suspect]
     Active Substance: SOTATERCEPT-CSRK
     Route: 058
     Dates: start: 20250103
  3. WINREVAIR [Suspect]
     Active Substance: SOTATERCEPT-CSRK
  4. WINREVAIR [Suspect]
     Active Substance: SOTATERCEPT-CSRK
  5. REMODULIN [Suspect]
     Active Substance: TREPROSTINIL
     Indication: Pulmonary arterial hypertension
     Route: 058
     Dates: start: 202406
  6. REMODULIN [Suspect]
     Active Substance: TREPROSTINIL
     Indication: Pulmonary arterial hypertension
     Route: 058
     Dates: start: 2024
  7. REMODULIN [Suspect]
     Active Substance: TREPROSTINIL
     Indication: Pulmonary arterial hypertension
     Route: 058
     Dates: start: 2024, end: 2024
  8. REMODULIN [Suspect]
     Active Substance: TREPROSTINIL
     Indication: Pulmonary arterial hypertension
     Route: 058
     Dates: start: 2024

REACTIONS (5)
  - Epistaxis [Not Recovered/Not Resolved]
  - Somnolence [Unknown]
  - Lethargy [Unknown]
  - Fatigue [Not Recovered/Not Resolved]
  - Blood test abnormal [Recovered/Resolved]

NARRATIVE: CASE EVENT DATE: 20241201
